FAERS Safety Report 5254219-0 (Version None)
Quarter: 2007Q1

REPORT INFORMATION
  Report Type: 
  Country: None (occurrence: None)
  Receive Date: 20070302
  Receipt Date: 20070301
  Transmission Date: 20070707
  Serious: Yes (Disabling)
  Sender: FDA-Public Use
  Company Number: US-GLAXOSMITHKLINE-A0625190A

PATIENT
  Age: 84 Year
  Sex: Male

DRUGS (4)
  1. AVANDAMET [Suspect]
     Dosage: 1TAB PER DAY
     Route: 048
     Dates: start: 20060101
  2. ATENOLOL [Concomitant]
  3. MINIPRESS [Concomitant]
  4. ASPIRIN [Concomitant]

REACTIONS (2)
  - BLOOD PRESSURE SYSTOLIC INCREASED [None]
  - TRANSIENT ISCHAEMIC ATTACK [None]
